FAERS Safety Report 10551671 (Version 2)
Quarter: 2014Q4

REPORT INFORMATION
  Report Type: Spontaneous
  Country: BR (occurrence: BR)
  Receive Date: 20141029
  Receipt Date: 20141105
  Transmission Date: 20150529
  Serious: Yes (Other)
  Sender: FDA-Public Use
  Company Number: BR-GLAXOSMITHKLINE-BR2014GSK013157

PATIENT
  Age: 31 Year
  Sex: Female
  Weight: 57 kg

DRUGS (3)
  1. CLINDOXYL CONTROL 10% [Suspect]
     Active Substance: BENZOYL PEROXIDE
     Indication: ACNE
     Dosage: 1 DF, QD
     Route: 061
     Dates: start: 20141008, end: 20141022
  2. MINESOL SPF 30 (ROC, JOHNSON + JOHNSON) [Concomitant]
     Indication: PROPHYLAXIS
     Dosage: 1 UNK, TID
     Route: 061
     Dates: start: 20141010
  3. CLINDOXYL CONTROL 5% [Suspect]
     Active Substance: BENZOYL PEROXIDE
     Indication: ACNE
     Dosage: 1 DF, QD
     Route: 061
     Dates: start: 20141008, end: 20141022

REACTIONS (8)
  - Systemic lupus erythematosus [Unknown]
  - Application site burn [Not Recovered/Not Resolved]
  - Skin disorder [Recovering/Resolving]
  - Skin hypertrophy [Recovering/Resolving]
  - Application site erythema [Not Recovered/Not Resolved]
  - Fatigue [Not Recovered/Not Resolved]
  - Application site reaction [Recovering/Resolving]
  - Application site pruritus [Recovering/Resolving]

NARRATIVE: CASE EVENT DATE: 20141017
